FAERS Safety Report 5929774-5 (Version None)
Quarter: 2008Q3

REPORT INFORMATION
  Report Type: 
  Country: None (occurrence: None)
  Receive Date: 20080930
  Receipt Date: 20080613
  Transmission Date: 20090109
  Serious: Yes (Other)
  Sender: FDA-Public Use
  Company Number: 172936USA

PATIENT
  Age: 62 Year
  Sex: Female

DRUGS (2)
  1. HALOPERIDOL [Suspect]
     Indication: MENTAL DISORDER
     Dosage: (0.5 ML)
     Dates: start: 20080514
  2. HALOPERIDOL [Suspect]
     Indication: SCHIZOPHRENIA, PARANOID TYPE
     Dosage: (0.5 ML)
     Dates: start: 20080514

REACTIONS (6)
  - ANOREXIA [None]
  - DELUSION [None]
  - DRUG INEFFECTIVE [None]
  - HALLUCINATION [None]
  - PALLOR [None]
  - SLEEP DISORDER [None]
